FAERS Safety Report 4657432-6 (Version None)
Quarter: 2005Q2

REPORT INFORMATION
  Report Type: 
  Country: None (occurrence: None)
  Receive Date: 20050509
  Receipt Date: 20050509
  Transmission Date: 20051028
  Serious: Yes (Hospitalization)
  Sender: FDA-Public Use
  Company Number: None

PATIENT
  Age: 61 Year
  Sex: Female
  Weight: 63.05 kg

DRUGS (1)
  1. DETROL LA [Suspect]
     Dosage: 4 MG 1 PER DAY
     Dates: start: 20050308, end: 20050315

REACTIONS (1)
  - BLADDER DISORDER [None]
